FAERS Safety Report 15247376 (Version 4)
Quarter: 2019Q2

REPORT INFORMATION
  Report Type: Report from Study
  Country: JP (occurrence: JP)
  Receive Date: 20180807
  Receipt Date: 20190503
  Transmission Date: 20190711
  Serious: Yes (Hospitalization, Other)
  Sender: FDA-Public Use
  Company Number: JP-ROCHE-2165528

PATIENT
  Age: 62 Year
  Sex: Male
  Weight: 77 kg

DRUGS (10)
  1. ATEZOLIZUMAB. [Suspect]
     Active Substance: ATEZOLIZUMAB
     Indication: NON-SMALL CELL LUNG CANCER
     Dosage: DOSAGE IS UNCERTAIN.
     Route: 041
     Dates: start: 20180508
  2. WARFARIN [Suspect]
     Active Substance: WARFARIN
     Indication: PRODUCT USED FOR UNKNOWN INDICATION
     Dosage: DOSAGE IS UNCERTAIN.
     Route: 065
  3. BISOPROLOL FUMARATE. [Suspect]
     Active Substance: BISOPROLOL FUMARATE
     Indication: PRODUCT USED FOR UNKNOWN INDICATION
     Route: 048
  4. PREDONINE [Suspect]
     Active Substance: PREDNISOLONE
     Indication: PRODUCT USED FOR UNKNOWN INDICATION
     Route: 048
  5. LANSOPRAZOLE. [Suspect]
     Active Substance: LANSOPRAZOLE
     Indication: PROPHYLAXIS
     Route: 048
  6. ATEZOLIZUMAB. [Suspect]
     Active Substance: ATEZOLIZUMAB
     Dosage: DOSAGE IS UNCERTAIN.
     Route: 041
     Dates: start: 20181016
  7. ATEZOLIZUMAB. [Suspect]
     Active Substance: ATEZOLIZUMAB
     Dosage: DOSAGE IS UNCERTAIN.
     Route: 041
     Dates: start: 20180918
  8. BEPRICOR [Suspect]
     Active Substance: BEPRIDIL
     Indication: PRODUCT USED FOR UNKNOWN INDICATION
     Route: 048
  9. ATEZOLIZUMAB. [Suspect]
     Active Substance: ATEZOLIZUMAB
     Dosage: DOSAGE IS UNCERTAIN.
     Route: 041
     Dates: start: 20190305
  10. WARFARIN POTASSIUM [Suspect]
     Active Substance: WARFARIN POTASSIUM
     Indication: PRODUCT USED FOR UNKNOWN INDICATION
     Route: 048

REACTIONS (4)
  - Hypokalaemia [Recovering/Resolving]
  - Diarrhoea [Recovered/Resolved]
  - Colitis [Recovering/Resolving]
  - Blood aldosterone increased [Not Recovered/Not Resolved]

NARRATIVE: CASE EVENT DATE: 20180622
